FAERS Safety Report 13644566 (Version 1)
Quarter: 2017Q2

REPORT INFORMATION
  Report Type: Spontaneous
  Country: US (occurrence: US)
  Receive Date: 20170612
  Receipt Date: 20170612
  Transmission Date: 20170830
  Serious: No
  Sender: FDA-Public Use
  Company Number: US-ROCHE-1520383

PATIENT
  Age: 72 Year
  Sex: Female

DRUGS (2)
  1. XELODA [Suspect]
     Active Substance: CAPECITABINE
     Indication: BREAST CANCER METASTATIC
     Dosage: 6X500MG FOR 3 WEEKS ON AND 1 WEEK OFF
     Route: 065
     Dates: start: 201208
  2. XELODA [Suspect]
     Active Substance: CAPECITABINE
     Dosage: 5X500MG TABLETS ONE WEEK ON AND ONE WEEK OFF
     Route: 065

REACTIONS (4)
  - Abdominal distension [Unknown]
  - Diarrhoea [Unknown]
  - Dyspepsia [Unknown]
  - Skin fissures [Unknown]
